FAERS Safety Report 8823014 (Version 2)
Quarter: 2012Q4

REPORT INFORMATION
  Report Type: 
  Country: US (occurrence: US)
  Receive Date: 20121003
  Receipt Date: 20121024
  Transmission Date: 20130627
  Serious: Yes (Death)
  Sender: FDA-Public Use
  Company Number: US-ROCHE-1131147

PATIENT
  Sex: Male

DRUGS (2)
  1. RITUXAN [Suspect]
     Indication: ANAEMIA HAEMOLYTIC AUTOIMMUNE
     Route: 050
     Dates: start: 200311
  2. RITUXAN [Suspect]
     Indication: OFF LABEL USE

REACTIONS (4)
  - Pneumonia [Fatal]
  - Malnutrition [Fatal]
  - Renal failure [Fatal]
  - Alcoholic [Fatal]
